FAERS Safety Report 5037338-3 (Version None)
Quarter: 2006Q2

REPORT INFORMATION
  Report Type: 
  Country: None (occurrence: None)
  Receive Date: 20060628
  Receipt Date: 20060524
  Transmission Date: 20061013
  Serious: Yes (Life-Threatening, Hospitalization)
  Sender: FDA-Public Use
  Company Number: PHEH2006US06900

PATIENT
  Age: 54 Year
  Sex: Male
  Weight: 127 kg

DRUGS (5)
  1. GLYBURIDE [Concomitant]
     Indication: DIABETES MELLITUS NON-INSULIN-DEPENDENT
     Dosage: 1/2 OF 2.5 MG TABLET, QD
  2. GLYBURIDE [Concomitant]
     Dosage: 1/2 OF 2.5 MG TABLET, QD
  3. GLUCOPHAGE [Concomitant]
     Indication: DIABETES MELLITUS NON-INSULIN-DEPENDENT
     Dosage: 500 MG, TID
     Route: 048
  4. GLUCOPHAGE [Concomitant]
     Dosage: 500 MG, TID
     Route: 048
  5. LOTREL [Suspect]
     Indication: HYPERTENSION
     Dosage: 5/20 MG, BID
     Route: 048
     Dates: start: 20030101, end: 20060502

REACTIONS (5)
  - ANGIONEUROTIC OEDEMA [None]
  - ASTHMA [None]
  - BRONCHOSPASM [None]
  - SWELLING FACE [None]
  - SWOLLEN TONGUE [None]
